FAERS Safety Report 21100613 (Version 1)
Quarter: 2022Q3

REPORT INFORMATION
  Report Type: Spontaneous
  Country: GB (occurrence: GB)
  Receive Date: 20220719
  Receipt Date: 20220719
  Transmission Date: 20221027
  Serious: No
  Sender: FDA-Public Use
  Company Number: None

PATIENT
  Age: 49 Year
  Sex: Female
  Weight: 79 kg

DRUGS (1)
  1. PAXLOVID [Suspect]
     Active Substance: NIRMATRELVIR\RITONAVIR
     Indication: Coronavirus infection
     Dosage: 4 MG

REACTIONS (6)
  - Nausea [Not Recovered/Not Resolved]
  - Feeding disorder [Unknown]
  - Abdominal distension [Not Recovered/Not Resolved]
  - Dizziness [Not Recovered/Not Resolved]
  - Dysgeusia [Not Recovered/Not Resolved]
  - Incorrect dose administered [Unknown]
